FAERS Safety Report 19078070 (Version 1)
Quarter: 2021Q1

REPORT INFORMATION
  Report Type: Spontaneous
  Country: TN (occurrence: TN)
  Receive Date: 20210331
  Receipt Date: 20210331
  Transmission Date: 20210420
  Serious: Yes (Other)
  Sender: FDA-Public Use
  Company Number: TN-MYLANLABS-2021M1019379

PATIENT
  Age: 54 Year
  Sex: Female

DRUGS (3)
  1. EPIRUBICIN [Suspect]
     Active Substance: EPIRUBICIN
     Indication: BREAST NEOPLASM
     Dosage: UNK
     Route: 065
  2. 5 FU [Suspect]
     Active Substance: FLUOROURACIL
     Indication: BREAST NEOPLASM
     Dosage: UNK
     Route: 065
  3. CYCLOPHOSPHAMIDE. [Suspect]
     Active Substance: CYCLOPHOSPHAMIDE
     Indication: BREAST NEOPLASM
     Dosage: UNK
     Route: 065

REACTIONS (1)
  - Lupus-like syndrome [Unknown]
